FAERS Safety Report 12601104 (Version 1)
Quarter: 2016Q3

REPORT INFORMATION
  Report Type: Spontaneous
  Country: FR (occurrence: FR)
  Receive Date: 20160728
  Receipt Date: 20160728
  Transmission Date: 20161109
  Serious: Yes (Hospitalization)
  Sender: FDA-Public Use
  Company Number: FR-AMGEN-FRASP2016096973

PATIENT
  Age: 59 Year
  Sex: Female

DRUGS (9)
  1. SPECIAFOLDINE [Concomitant]
     Active Substance: FOLIC ACID
  2. ENBREL [Suspect]
     Active Substance: ETANERCEPT
     Indication: PSORIATIC ARTHROPATHY
     Dosage: 50 MG, WEEKLY
     Route: 058
     Dates: start: 20140626, end: 20160614
  3. METOJECT [Suspect]
     Active Substance: METHOTREXATE SODIUM
     Indication: PSORIATIC ARTHROPATHY
     Dosage: 10 MG, WEEKLY
     Route: 058
     Dates: start: 20151209, end: 20160614
  4. IXPRIM [Suspect]
     Active Substance: ACETAMINOPHEN\TRAMADOL HYDROCHLORIDE
     Indication: DEPRESSION
     Dosage: 1 DF, 6X/AY
     Route: 048
  5. PARIET [Suspect]
     Active Substance: RABEPRAZOLE SODIUM
     Indication: DEPRESSION
     Route: 048
  6. AUGMENTIN [Concomitant]
     Active Substance: AMOXICILLIN\CLAVULANATE POTASSIUM
     Indication: DYSPNOEA
     Dosage: 1 G, 3X/DAY
     Route: 048
  7. SERESTA [Suspect]
     Active Substance: OXAZEPAM
     Indication: DEPRESSION
     Dosage: 10 MG, 2X/DAY
     Route: 048
  8. ZOPICLONE [Suspect]
     Active Substance: ZOPICLONE
     Indication: DEPRESSION
     Dosage: 7.5 MG, 1X/DAY
     Route: 048
  9. FLUOXETINE HYDROCHLORIDE. [Suspect]
     Active Substance: FLUOXETINE HYDROCHLORIDE
     Indication: DEPRESSION
     Dosage: 20 MG, 1X/DAY
     Route: 048

REACTIONS (3)
  - Dyspnoea [Not Recovered/Not Resolved]
  - Sinus tachycardia [Unknown]
  - Interstitial lung disease [Unknown]

NARRATIVE: CASE EVENT DATE: 201606
